FAERS Safety Report 23612397 (Version 3)
Quarter: 2024Q3

REPORT INFORMATION
  Report Type: Spontaneous
  Country: US (occurrence: US)
  Receive Date: 20240308
  Receipt Date: 20240819
  Transmission Date: 20241017
  Serious: No
  Sender: PFIZER
  Company Number: US-PFIZER INC-PV202400032115

PATIENT
  Age: 66 Year
  Sex: Female
  Weight: 54.43 kg

DRUGS (3)
  1. IBRANCE [Suspect]
     Active Substance: PALBOCICLIB
     Indication: Breast cancer female
     Dosage: 75 MG, CYCLIC (EVERY NIGHT AT 9 PM,  TAKE IT 28 DAYS AND ONE WEEK OFF)
     Route: 048
     Dates: start: 202401
  2. IBRANCE [Suspect]
     Active Substance: PALBOCICLIB
     Indication: Metastases to lung
  3. LETROZOLE [Concomitant]
     Active Substance: LETROZOLE
     Indication: Oestrogen therapy
     Dosage: 2.5 MG, 1X/DAY (I TAKE THAT AT THE SAME TIME ONCE A DAY)

REACTIONS (12)
  - Nausea [Unknown]
  - Emotional disorder [Recovered/Resolved]
  - Abdominal distension [Recovered/Resolved]
  - Diarrhoea [Recovered/Resolved]
  - Stress [Unknown]
  - Asthenia [Unknown]
  - Illness [Unknown]
  - Influenza like illness [Unknown]
  - Dizziness [Unknown]
  - Malaise [Unknown]
  - White blood cell count decreased [Unknown]
  - Red blood cell count decreased [Unknown]

NARRATIVE: CASE EVENT DATE: 20240319
